FAERS Safety Report 10155633 (Version 1)
Quarter: 2014Q2

REPORT INFORMATION
  Report Type: Spontaneous
  Country: US (occurrence: US)
  Receive Date: 20140506
  Receipt Date: 20140506
  Transmission Date: 20141212
  Serious: Yes (Other)
  Sender: FDA-Public Use
  Company Number: US-GLAXOSMITHKLINE-A1065280A

PATIENT
  Age: 61 Year
  Sex: Female
  Weight: 63 kg

DRUGS (7)
  1. VOTRIENT [Suspect]
     Indication: LEIOMYOSARCOMA METASTATIC
     Dosage: 800MG PER DAY
     Route: 048
     Dates: start: 20130212, end: 201402
  2. RANITIDINE [Concomitant]
  3. ZOLPIDEM [Concomitant]
  4. OMEPRAZOLE [Concomitant]
  5. METAXALONE [Concomitant]
  6. LISINOPRIL [Concomitant]
  7. BUPROPION [Concomitant]

REACTIONS (5)
  - Leiomyosarcoma metastatic [Not Recovered/Not Resolved]
  - Metastatic neoplasm [Not Recovered/Not Resolved]
  - No therapeutic response [Unknown]
  - Hospice care [Not Recovered/Not Resolved]
  - Drug ineffective [Unknown]
